FAERS Safety Report 22309761 (Version 1)
Quarter: 2023Q2

REPORT INFORMATION
  Report Type: Spontaneous
  Country: US (occurrence: None)
  Receive Date: 20230510
  Receipt Date: 20230510
  Transmission Date: 20230722
  Serious: No
  Sender: FDA-Public Use
  Company Number: None

PATIENT
  Age: 45 Year
  Sex: Male
  Weight: 85.5 kg

DRUGS (7)
  1. DEXMETHYLPHENIDATE [Suspect]
     Active Substance: DEXMETHYLPHENIDATE
     Indication: Attention deficit hyperactivity disorder
     Dosage: OTHER QUANTITY : 180 TABLET(S);?FREQUENCY : TWICE A DAY;?
     Route: 048
     Dates: start: 20230502, end: 20230506
  2. Levothyroxin 112mcg [Concomitant]
  3. FOCALIN [Concomitant]
     Active Substance: DEXMETHYLPHENIDATE HYDROCHLORIDE
  4. Focalin 5mg [Concomitant]
  5. VITAMINS [Concomitant]
     Active Substance: VITAMINS
  6. Aspirin [Concomitant]
  7. TYLENOL [Concomitant]
     Active Substance: ACETAMINOPHEN

REACTIONS (7)
  - Product taste abnormal [None]
  - Dizziness [None]
  - Brain fog [None]
  - Tension headache [None]
  - Blood pressure increased [None]
  - Malaise [None]
  - Product use issue [None]

NARRATIVE: CASE EVENT DATE: 20230502
